FAERS Safety Report 18209920 (Version 2)
Quarter: 2020Q3

REPORT INFORMATION
  Report Type: Report from Study
  Country: US (occurrence: US)
  Receive Date: 20200828
  Receipt Date: 20200911
  Transmission Date: 20201103
  Serious: Yes (Other)
  Sender: FDA-Public Use
  Company Number: US-BIOMARINAP-US-2020-131427

PATIENT
  Age: 33 Year
  Sex: Male
  Weight: 132 kg

DRUGS (1)
  1. PEGVALIASE. [Suspect]
     Active Substance: PEGVALIASE
     Indication: PHENYLKETONURIA
     Dosage: 50 MILLIGRAM, QD
     Route: 058
     Dates: start: 20181118

REACTIONS (2)
  - Pregnancy of partner [Recovered/Resolved]
  - Ectopic pregnancy [Recovered/Resolved]

NARRATIVE: CASE EVENT DATE: 20200620
